FAERS Safety Report 6082435-7 (Version None)
Quarter: 2009Q1

REPORT INFORMATION
  Report Type: 
  Country: None (occurrence: None)
  Receive Date: 20090218
  Receipt Date: 20090210
  Transmission Date: 20090719
  Serious: Yes (Hospitalization, Other)
  Sender: FDA-Public Use
  Company Number: US-MERCK-0804USA01815

PATIENT
  Age: 76 Year
  Sex: Male
  Weight: 67 kg

DRUGS (7)
  1. FOSAMAX [Suspect]
     Indication: OSTEOPOROSIS
     Route: 048
     Dates: start: 20051201, end: 20070101
  2. FOSAMAX [Suspect]
     Route: 048
     Dates: start: 20020101
  3. ATENOLOL [Concomitant]
     Indication: BLOOD PRESSURE INCREASED
     Route: 065
     Dates: start: 20000101, end: 20070801
  4. SIMVASTATIN [Concomitant]
     Indication: BLOOD CHOLESTEROL INCREASED
     Route: 065
     Dates: start: 20000101
  5. HYDROCHLOROTHIAZIDE [Concomitant]
     Indication: BLOOD PRESSURE INCREASED
     Route: 065
     Dates: start: 20010101, end: 20070501
  6. ALBUTEROL [Concomitant]
     Indication: CHRONIC OBSTRUCTIVE PULMONARY DISEASE
     Route: 065
     Dates: start: 20000701
  7. LISINOPRIL [Concomitant]
     Indication: HYPERTENSION
     Route: 065
     Dates: start: 20020301, end: 20020801

REACTIONS (41)
  - ABSCESS [None]
  - ACTIVITIES OF DAILY LIVING IMPAIRED [None]
  - ADVERSE DRUG REACTION [None]
  - ADVERSE REACTION [None]
  - ANEURYSM [None]
  - ARTERIOSCLEROSIS OBLITERANS [None]
  - BACK PAIN [None]
  - BENIGN PROSTATIC HYPERPLASIA [None]
  - BLADDER OBSTRUCTION [None]
  - BLOOD CREATININE INCREASED [None]
  - BLOOD URINE [None]
  - BONE DISORDER [None]
  - CELLULITIS [None]
  - CHRONIC OBSTRUCTIVE PULMONARY DISEASE [None]
  - DEAFNESS [None]
  - DENTAL CARIES [None]
  - ECCHYMOSIS [None]
  - ENTEROBACTER INFECTION [None]
  - EXOSTOSIS [None]
  - FALL [None]
  - FRACTURE [None]
  - GASTROINTESTINAL DISORDER [None]
  - HAEMATURIA [None]
  - HYPERGLYCAEMIA [None]
  - HYPOKALAEMIA [None]
  - HYPOMAGNESAEMIA [None]
  - HYPOXIA [None]
  - IMPAIRED HEALING [None]
  - LOSS OF CONSCIOUSNESS [None]
  - NECROSIS [None]
  - NEPHROPATHY [None]
  - NOCTURIA [None]
  - OSTEOARTHRITIS [None]
  - OSTEOMYELITIS ACUTE [None]
  - OSTEONECROSIS [None]
  - PNEUMONIA [None]
  - PROSTATIC DISORDER [None]
  - RESIDUAL URINE [None]
  - SPINAL COLUMN STENOSIS [None]
  - SPINAL COMPRESSION FRACTURE [None]
  - TOOTH DISORDER [None]
